FAERS Safety Report 16358746 (Version 1)
Quarter: 2019Q2

REPORT INFORMATION
  Report Type: Spontaneous
  Country: DE (occurrence: DE)
  Receive Date: 20190527
  Receipt Date: 20190527
  Transmission Date: 20190711
  Serious: Yes (Other)
  Sender: FDA-Public Use
  Company Number: PHHY2019DE022084

PATIENT
  Sex: Male
  Weight: 130 kg

DRUGS (6)
  1. CYTARABINE. [Concomitant]
     Active Substance: CYTARABINE
     Indication: ACUTE MYELOID LEUKAEMIA
     Dosage: 470 MG, QD
     Route: 042
     Dates: start: 20180928, end: 20181004
  2. RYDAPT [Suspect]
     Active Substance: MIDOSTAURIN
     Indication: ACUTE MYELOID LEUKAEMIA
     Dosage: 50 MG, BID
     Route: 048
     Dates: start: 20181005, end: 20181018
  3. DAUNORUBICINE [Concomitant]
     Active Substance: DAUNORUBICIN
     Indication: ACUTE MYELOID LEUKAEMIA
     Dosage: 141 MG, QD
     Route: 042
     Dates: start: 20180928, end: 20181004
  4. RYDAPT [Interacting]
     Active Substance: MIDOSTAURIN
     Dosage: 24 MG, QD
     Route: 042
     Dates: start: 20181124
  5. CYTARABINE. [Concomitant]
     Active Substance: CYTARABINE
     Dosage: 14100 OT, QD
     Route: 042
     Dates: start: 20181122, end: 20181125
  6. POSACONAZOLE [Interacting]
     Active Substance: POSACONAZOLE
     Indication: PROPHYLAXIS
     Dosage: UNK
     Route: 065

REACTIONS (7)
  - Colitis ulcerative [Unknown]
  - Acute myeloid leukaemia recurrent [Unknown]
  - Drug interaction [Unknown]
  - White blood cell count decreased [Recovered/Resolved]
  - Fungal infection [Recovering/Resolving]
  - Neutrophil count decreased [Recovered/Resolved]
  - Hepatic candidiasis [Not Recovered/Not Resolved]

NARRATIVE: CASE EVENT DATE: 20181018
